FAERS Safety Report 8776560 (Version 1)
Quarter: 2012Q4

REPORT INFORMATION
  Report Type: 
  Country: GB (occurrence: GB)
  Receive Date: 20120907
  Receipt Date: 20120907
  Transmission Date: 20130627
  Serious: Yes (Other)
  Sender: FDA-Public Use
  Company Number: PHHY2012GB076803

PATIENT
  Age: 57 Year
  Sex: Female

DRUGS (2)
  1. INDAPAMIDE [Suspect]
     Indication: HYPERTENSION
     Dosage: 2.5 mg, QD
     Route: 048
     Dates: start: 20120713, end: 20120721
  2. DICLOFENAC [Concomitant]
     Indication: PAIN
     Dosage: 100 mg, QD
     Route: 054

REACTIONS (1)
  - Skin exfoliation [Recovering/Resolving]
